FAERS Safety Report 20490952 (Version 1)
Quarter: 2022Q1

REPORT INFORMATION
  Report Type: Spontaneous
  Country: JP (occurrence: JP)
  Receive Date: 20220218
  Receipt Date: 20220218
  Transmission Date: 20220423
  Serious: Yes (Death, Hospitalization, Other)
  Sender: FDA-Public Use
  Company Number: JP-VIIVHC-JP2022JPN027662AA

PATIENT
  Age: 67 Year
  Sex: Male

DRUGS (3)
  1. LEXIVA [Suspect]
     Active Substance: FOSAMPRENAVIR CALCIUM
     Indication: Acquired immunodeficiency syndrome
     Dosage: UNK
  2. TRUVADA [Concomitant]
     Active Substance: EMTRICITABINE\TENOFOVIR DISOPROXIL FUMARATE
     Indication: Acquired immunodeficiency syndrome
     Dosage: UNK
  3. BENAMBAX INHALATION [Concomitant]
     Indication: Antifungal prophylaxis
     Dosage: UNK

REACTIONS (7)
  - Pemphigoid [Recovering/Resolving]
  - Pruritus [Unknown]
  - Erythema [Recovered/Resolved]
  - Blister [Recovered/Resolved]
  - Skin erosion [Recovering/Resolving]
  - Pigmentation disorder [Unknown]
  - Death [Fatal]
